FAERS Safety Report 6335780-1 (Version None)
Quarter: 2009Q3

REPORT INFORMATION
  Report Type: 
  Country: None (occurrence: None)
  Receive Date: 20090828
  Receipt Date: 20090819
  Transmission Date: 20100115
  Serious: Yes (Other)
  Sender: FDA-Public Use
  Company Number: ALL1-2009-02391

PATIENT
  Sex: Male

DRUGS (1)
  1. ADDERALL XR 10 [Suspect]
     Dosage: 20 MG, ORAL
     Route: 048
     Dates: start: 20090801

REACTIONS (1)
  - DEHYDRATION [None]
